FAERS Safety Report 16124475 (Version 1)
Quarter: 2019Q1

REPORT INFORMATION
  Report Type: Spontaneous
  Country: US (occurrence: US)
  Receive Date: 20190327
  Receipt Date: 20190327
  Transmission Date: 20190418
  Serious: No
  Sender: FDA-Public Use
  Company Number: US-SA-2019SA080037

PATIENT
  Sex: Male

DRUGS (1)
  1. DUPIXENT [Suspect]
     Active Substance: DUPILUMAB

REACTIONS (17)
  - Fatigue [Unknown]
  - Pain in extremity [Unknown]
  - Skin exfoliation [Unknown]
  - Food allergy [Unknown]
  - Allergy to chemicals [Unknown]
  - Arthralgia [Unknown]
  - Oral herpes [Unknown]
  - Eye irritation [Unknown]
  - Skin burning sensation [Unknown]
  - Performance status decreased [Unknown]
  - Rash macular [Unknown]
  - Dry skin [Unknown]
  - Condition aggravated [Unknown]
  - Feeling abnormal [Unknown]
  - Myalgia [Unknown]
  - Erythema [Unknown]
  - Pain [Unknown]
